FAERS Safety Report 4330828-8 (Version None)
Quarter: 2004Q1

REPORT INFORMATION
  Report Type: 
  Country: None (occurrence: None)
  Receive Date: 20040331
  Receipt Date: 20040315
  Transmission Date: 20041129
  Serious: Yes (Hospitalization)
  Sender: FDA-Public Use
  Company Number: USA040362037

PATIENT
  Age: 17 Year
  Sex: Male
  Weight: 73 kg

DRUGS (3)
  1. ZYPREXA [Suspect]
     Indication: SCHIZOAFFECTIVE DISORDER
     Dosage: 30 MG
     Dates: start: 20030101
  2. DEPAKOTE [Concomitant]
  3. BENZTROPINE MESYLATE [Concomitant]

REACTIONS (4)
  - MENTAL IMPAIRMENT [None]
  - PSYCHOTIC DISORDER [None]
  - TREMOR [None]
  - WEIGHT ABNORMAL [None]
